FAERS Safety Report 15805874 (Version 1)
Quarter: 2019Q1

REPORT INFORMATION
  Report Type: Report from Study
  Country: BR (occurrence: BR)
  Receive Date: 20190110
  Receipt Date: 20190110
  Transmission Date: 20190417
  Serious: Yes (Death, Hospitalization, Other)
  Sender: FDA-Public Use
  Company Number: BR-ELI_LILLY_AND_COMPANY-BR201812000513

PATIENT
  Age: 75 Year
  Sex: Female

DRUGS (4)
  1. CETUXIMAB. [Suspect]
     Active Substance: CETUXIMAB
     Indication: ADENOCARCINOMA OF COLON
     Dosage: UNK, UNKNOWN
     Route: 065
     Dates: start: 20180903
  2. LOSARTAN POTASSIUM. [Concomitant]
     Active Substance: LOSARTAN POTASSIUM
     Indication: HYPERTENSION
  3. ATENOLOL. [Concomitant]
     Active Substance: ATENOLOL
     Indication: HYPERTENSION
  4. HYDROCHLOROTHIAZIDE. [Concomitant]
     Active Substance: HYDROCHLOROTHIAZIDE
     Indication: HYPERTENSION

REACTIONS (10)
  - Septic shock [Fatal]
  - Diarrhoea [Unknown]
  - Urinary tract infection [Fatal]
  - Pharyngeal ulceration [Unknown]
  - Mouth ulceration [Unknown]
  - Dry skin [Unknown]
  - Dehydration [Unknown]
  - Syncope [Unknown]
  - Decreased appetite [Unknown]
  - Muscular weakness [Unknown]

NARRATIVE: CASE EVENT DATE: 201809
